FAERS Safety Report 5125810-7 (Version None)
Quarter: 2006Q4

REPORT INFORMATION
  Report Type: 
  Country: None (occurrence: None)
  Receive Date: 20061012
  Receipt Date: 20060904
  Transmission Date: 20070319
  Serious: Yes (Hospitalization)
  Sender: FDA-Public Use
  Company Number: DEWYE842504SEP06

PATIENT
  Sex: Male
  Weight: 95 kg

DRUGS (7)
  1. ENBREL [Suspect]
     Indication: PSORIATIC ARTHROPATHY
     Route: 058
     Dates: start: 20060701, end: 20060820
  2. CO-DIOVAN [Concomitant]
  3. OMEPRAZOLE [Concomitant]
  4. LEVOTHYROXINE SODIUM [Concomitant]
  5. MOVICOL [Concomitant]
  6. MST [Concomitant]
  7. AMLODIPINE [Concomitant]

REACTIONS (2)
  - GASTRITIS [None]
  - VOMITING [None]
